FAERS Safety Report 18285607 (Version 1)
Quarter: 2020Q3

REPORT INFORMATION
  Report Type: Report from Study
  Country: EC (occurrence: EC)
  Receive Date: 20200918
  Receipt Date: 20200918
  Transmission Date: 20201103
  Serious: Yes (Death)
  Sender: FDA-Public Use
  Company Number: NVSC2020EC254912

PATIENT
  Age: 48 Year
  Sex: Male

DRUGS (3)
  1. TASIGNA [Suspect]
     Active Substance: NILOTINIB
     Dosage: 750 MG, QD (450 MG IN THE MORNING AND 350 MG IN THE AFTERNOON)
     Route: 048
     Dates: start: 20190530, end: 20190704
  2. TASIGNA [Suspect]
     Active Substance: NILOTINIB
     Dosage: 600 MG, QD (200 MG IN THE MORNING AND 400 MG AT NIGHT)
     Route: 048
     Dates: start: 20200102
  3. TASIGNA [Suspect]
     Active Substance: NILOTINIB
     Indication: CHRONIC MYELOID LEUKAEMIA
     Dosage: 400 MG, BID
     Route: 048
     Dates: start: 20181017, end: 20190321

REACTIONS (1)
  - Death [Fatal]

NARRATIVE: CASE EVENT DATE: 20200911
